FAERS Safety Report 5299220-6 (Version None)
Quarter: 2007Q2

REPORT INFORMATION
  Report Type: 
  Country: None (occurrence: None)
  Receive Date: 20070411
  Receipt Date: 20070411
  Transmission Date: 20071010
  Serious: Yes (Hospitalization)
  Sender: FDA-Public Use
  Company Number: None

PATIENT
  Age: 79 Year
  Sex: Male

DRUGS (9)
  1. WARFARIN SODIUM [Suspect]
     Indication: ATRIAL FIBRILLATION
     Dosage: 2MG DAILY  PO
     Route: 048
  2. PREDNISONE TAB [Suspect]
     Indication: IDIOPATHIC THROMBOCYTOPENIC PURPURA
     Dosage: 80MG  DAILY  PO
     Route: 048
  3. ASPIRIN [Suspect]
     Indication: ATRIAL FIBRILLATION
     Dosage: 81 MG DAILY
  4. TERAZOSIN HCL [Concomitant]
  5. METOPROLOL SUCCINATE [Concomitant]
  6. FINASTERIDE [Concomitant]
  7. FELODIPINE [Concomitant]
  8. DIGOXIN [Concomitant]
  9. LASIX [Concomitant]

REACTIONS (4)
  - CONTUSION [None]
  - EYE HAEMORRHAGE [None]
  - GINGIVAL BLEEDING [None]
  - INTERNATIONAL NORMALISED RATIO INCREASED [None]
